FAERS Safety Report 23580232 (Version 3)
Quarter: 2024Q1

REPORT INFORMATION
  Report Type: Spontaneous
  Country: US (occurrence: US)
  Receive Date: 20240229
  Receipt Date: 20240320
  Transmission Date: 20240410
  Serious: No
  Sender: FDA-Public Use
  Company Number: US-BIOGEN-2024BI01252850

PATIENT
  Sex: Female
  Weight: 59.928 kg

DRUGS (1)
  1. TYSABRI [Suspect]
     Active Substance: NATALIZUMAB
     Indication: Multiple sclerosis
     Dosage: INFUSED OVER 1 HOUR
     Route: 050

REACTIONS (3)
  - COVID-19 [Not Recovered/Not Resolved]
  - Decreased immune responsiveness [Unknown]
  - Urticaria [Unknown]
